FAERS Safety Report 5911108-3 (Version None)
Quarter: 2008Q4

REPORT INFORMATION
  Report Type: 
  Country: None (occurrence: None)
  Receive Date: 20081007
  Receipt Date: 20071220
  Transmission Date: 20090506
  Serious: No
  Sender: FDA-Public Use
  Company Number: US-BRISTOL-MYERS SQUIBB COMPANY-14021208

PATIENT
  Age: 51 Year
  Sex: Male
  Weight: 88 kg

DRUGS (2)
  1. AVAPRO [Suspect]
     Indication: HYPERTENSION
     Route: 048
  2. VYTORIN [Concomitant]

REACTIONS (1)
  - ASTHENIA [None]
